FAERS Safety Report 7585820-7 (Version None)
Quarter: 2011Q2

REPORT INFORMATION
  Report Type: 
  Country: None (occurrence: None)
  Receive Date: 20110603
  Receipt Date: 20110413
  Transmission Date: 20111010
  Serious: No
  Sender: FDA-Public Use
  Company Number: 201104046

PATIENT
  Age: 40 Year
  Sex: Male

DRUGS (1)
  1. XIAFLEX [Suspect]
     Indication: PRODUCT USED FOR UNKNOWN INDICATION
     Dosage: 1 IN 1 D, INTRALESIONAL
     Route: 026

REACTIONS (2)
  - WRONG TECHNIQUE IN DRUG USAGE PROCESS [None]
  - LACERATION [None]
